FAERS Safety Report 9931611 (Version 1)
Quarter: 2014Q1

REPORT INFORMATION
  Report Type: Report from Study
  Country: CA (occurrence: CA)
  Receive Date: 20140228
  Receipt Date: 20140228
  Transmission Date: 20141002
  Serious: Yes (Death, Hospitalization)
  Sender: FDA-Public Use
  Company Number: CA-JNJFOC-20140215508

PATIENT
  Sex: Male

DRUGS (6)
  1. TYLENOL ARTHRITIS [Suspect]
     Route: 048
  2. TYLENOL ARTHRITIS [Suspect]
     Indication: PRODUCT USED FOR UNKNOWN INDICATION
     Dosage: TOOK A HANDFUL
     Route: 048
     Dates: start: 20040211, end: 20040225
  3. TYLENOL NO 4 [Suspect]
     Indication: PRODUCT USED FOR UNKNOWN INDICATION
     Route: 065
  4. CODEINE [Suspect]
     Indication: PRODUCT USED FOR UNKNOWN INDICATION
     Route: 048
  5. ETHANOL [Suspect]
     Indication: PRODUCT USED FOR UNKNOWN INDICATION
     Route: 048
  6. CAFFEINE [Suspect]
     Indication: PRODUCT USED FOR UNKNOWN INDICATION
     Route: 048

REACTIONS (6)
  - Overdose [Fatal]
  - Ketoacidosis [Unknown]
  - Metabolic encephalopathy [Not Recovered/Not Resolved]
  - Hepatitis alcoholic [Unknown]
  - Intestinal ischaemia [Unknown]
  - Suicidal ideation [Unknown]
